FAERS Safety Report 5616699-8 (Version None)
Quarter: 2008Q1

REPORT INFORMATION
  Report Type: 
  Country: None (occurrence: None)
  Receive Date: 20080207
  Receipt Date: 20080131
  Transmission Date: 20080703
  Serious: Yes (Other)
  Sender: FDA-Public Use
  Company Number: PHEH2008US01432

PATIENT
  Sex: Female

DRUGS (1)
  1. FORADIL [Suspect]
     Indication: ASTHMA

REACTIONS (2)
  - ASTHMA [None]
  - DEVICE MALFUNCTION [None]
